FAERS Safety Report 4809652-5 (Version None)
Quarter: 2005Q4

REPORT INFORMATION
  Report Type: 
  Country: None (occurrence: None)
  Receive Date: 20051021
  Receipt Date: 20050909
  Transmission Date: 20060501
  Serious: Yes (Hospitalization)
  Sender: FDA-Public Use
  Company Number: 2005BI0106878

PATIENT
  Age: 71 Year
  Sex: Male

DRUGS (1)
  1. AVONEX [Suspect]
     Indication: MULTIPLE SCLEROSIS
     Dosage: 30 UG QW IM
     Route: 030
     Dates: start: 20050111

REACTIONS (4)
  - BLOOD SODIUM DECREASED [None]
  - GASTRIC HAEMORRHAGE [None]
  - KIDNEY INFECTION [None]
  - URINARY TRACT INFECTION [None]
